FAERS Safety Report 7547955-4 (Version None)
Quarter: 2011Q2

REPORT INFORMATION
  Report Type: 
  Country: None (occurrence: None)
  Receive Date: 20110615
  Receipt Date: 20081218
  Transmission Date: 20111010
  Serious: No
  Sender: FDA-Public Use
  Company Number: 2008BI034423

PATIENT
  Age: 56 Year
  Sex: Female

DRUGS (1)
  1. TYSABRI [Suspect]
     Indication: MULTIPLE SCLEROSIS
     Route: 042
     Dates: start: 20080501, end: 20101112

REACTIONS (4)
  - MUSCULAR WEAKNESS [None]
  - FATIGUE [None]
  - PERONEAL NERVE PALSY [None]
  - INJECTION SITE HAEMORRHAGE [None]
